FAERS Safety Report 15997117 (Version 2)
Quarter: 2019Q2

REPORT INFORMATION
  Report Type: Spontaneous
  Country: US (occurrence: US)
  Receive Date: 20190222
  Receipt Date: 20190412
  Transmission Date: 20190711
  Serious: No
  Sender: FDA-Public Use
  Company Number: US-SA-2019SA042459

PATIENT
  Sex: Female

DRUGS (1)
  1. AUBAGIO [Suspect]
     Active Substance: TERIFLUNOMIDE
     Dosage: 14 MG, QD
     Route: 048

REACTIONS (7)
  - Dyspnoea [Unknown]
  - Drug intolerance [Unknown]
  - Pruritus [Unknown]
  - Dry skin [Unknown]
  - Nausea [Unknown]
  - Throat tightness [Unknown]
  - Skin discolouration [Unknown]
